FAERS Safety Report 14371416 (Version 4)
Quarter: 2018Q1

REPORT INFORMATION
  Report Type: Report from Study
  Country: US (occurrence: US)
  Receive Date: 20180110
  Receipt Date: 20180222
  Transmission Date: 20180509
  Serious: Yes (Death, Life-Threatening, Hospitalization, Other)
  Sender: FDA-Public Use
  Company Number: PHEH2018US001162

PATIENT
  Sex: Female
  Weight: 115 kg

DRUGS (2)
  1. GLEEVEC [Suspect]
     Active Substance: IMATINIB MESYLATE
     Indication: CHRONIC MYELOID LEUKAEMIA
     Dosage: 400 MG, QD
     Route: 065
  2. GLEEVEC [Suspect]
     Active Substance: IMATINIB MESYLATE
     Dosage: 400 MG, QOD
     Route: 065

REACTIONS (8)
  - Chronic myeloid leukaemia [Fatal]
  - Chronic obstructive pulmonary disease [Fatal]
  - Gastrointestinal disorder [Unknown]
  - Malignant neoplasm progression [Fatal]
  - Hypercapnia [Fatal]
  - Ventricular arrhythmia [Fatal]
  - Pneumonia [Fatal]
  - Hypoxia [Fatal]
